FAERS Safety Report 7422062-X (Version None)
Quarter: 2011Q2

REPORT INFORMATION
  Report Type: 
  Country: None (occurrence: None)
  Receive Date: 20110418
  Receipt Date: 20110414
  Transmission Date: 20111010
  Serious: Yes (Death, Other)
  Sender: FDA-Public Use
  Company Number: US-B.I. PHARMACEUTICALS,INC./RIDGEFIELD-2011-BP-03695BP

PATIENT
  Sex: Male
  Weight: 141.5 kg

DRUGS (4)
  1. PRILOSEC [Concomitant]
     Dosage: 20 MG
  2. PRADAXA [Suspect]
     Indication: ATRIAL FIBRILLATION
     Dosage: 300 MG
     Dates: start: 20101101
  3. VYTORIN [Concomitant]
  4. METOPROLOL [Concomitant]
     Dosage: 50 MG

REACTIONS (5)
  - DEATH [None]
  - CEREBRAL HAEMORRHAGE [None]
  - CONVULSION [None]
  - CEREBROVASCULAR ACCIDENT [None]
  - CHEST PAIN [None]
